FAERS Safety Report 8916532 (Version 1)
Quarter: 2012Q4

REPORT INFORMATION
  Report Type: 
  Country: US (occurrence: US)
  Receive Date: 20121120
  Receipt Date: 20121120
  Transmission Date: 20130627
  Serious: Yes (Hospitalization)
  Sender: FDA-Public Use
  Company Number: US-INCYTE CORPORATION-2012IN002349

PATIENT

DRUGS (13)
  1. JAKAFI [Suspect]
     Indication: MYELOFIBROSIS
     Dosage: 15 mg, bid
     Route: 048
     Dates: end: 20121031
  2. LUMIGAN [Concomitant]
  3. SPIRONOLACTONE [Concomitant]
     Dosage: 25 mg, qd
  4. DIGOXIN [Concomitant]
     Dosage: 0.25 mg, UNK
  5. METOPROLOL [Concomitant]
     Dosage: 25 mg, qd
  6. FUROSEMIDE [Concomitant]
     Dosage: 40 mg, qd
  7. GEMFIBROZIL [Concomitant]
     Dosage: 600 mg, qd
  8. LISINOPRIL [Concomitant]
  9. OMEGA 3 FISH OIL [Concomitant]
     Dosage: 1000 mg, UNK
  10. MVI [Concomitant]
     Dosage: UNK, qd
  11. PRAVASTATIN [Concomitant]
     Dosage: 40 mg, qd
  12. VITAMIN E [Concomitant]
     Dosage: 400 IU, qd
  13. PANTOPRAZOLE [Concomitant]
     Dosage: 40 mg, qd

REACTIONS (2)
  - Cardiac disorder [Unknown]
  - Rash [Unknown]
